FAERS Safety Report 17370540 (Version 2)
Quarter: 2020Q1

REPORT INFORMATION
  Report Type: Spontaneous
  Country: IS (occurrence: IS)
  Receive Date: 20200205
  Receipt Date: 20200319
  Transmission Date: 20200409
  Serious: Yes (Hospitalization)
  Sender: FDA-Public Use
  Company Number: IS-BIOGEN-2020BI00834007

PATIENT
  Age: 17 Year
  Sex: Male
  Weight: 40 kg

DRUGS (1)
  1. SPINRAZA [Suspect]
     Active Substance: NUSINERSEN
     Indication: SPINAL MUSCULAR ATROPHY
     Route: 037

REACTIONS (2)
  - Myocarditis [Recovered/Resolved]
  - Gastroenteritis viral [Recovered/Resolved]

NARRATIVE: CASE EVENT DATE: 20191019
